FAERS Safety Report 6007611-0 (Version None)
Quarter: 2008Q4

REPORT INFORMATION
  Report Type: 
  Country: None (occurrence: None)
  Receive Date: 20081217
  Receipt Date: 20080320
  Transmission Date: 20090506
  Serious: No
  Sender: FDA-Public Use
  Company Number: US-ASTRAZENECA-2008UW05735

PATIENT
  Age: 79 Year
  Sex: Female
  Weight: 65.8 kg

DRUGS (2)
  1. CRESTOR [Suspect]
     Indication: BLOOD CHOLESTEROL INCREASED
     Route: 048
     Dates: start: 20060101
  2. ANTIHISTAMI [Concomitant]

REACTIONS (3)
  - LIMB DISCOMFORT [None]
  - MUSCULAR WEAKNESS [None]
  - MYALGIA [None]
